FAERS Safety Report 9349325 (Version 1)
Quarter: 2013Q2

REPORT INFORMATION
  Report Type: Report from Study
  Country: US (occurrence: US)
  Receive Date: 20130614
  Receipt Date: 20130614
  Transmission Date: 20140414
  Serious: Yes (Hospitalization)
  Sender: FDA-Public Use
  Company Number: US-ABBOTT-13P-163-1101013-00

PATIENT
  Age: 48 Year
  Sex: Female
  Weight: 75.36 kg

DRUGS (9)
  1. HUMIRA [Suspect]
     Indication: CROHN^S DISEASE
     Dates: start: 201205, end: 201211
  2. HUMIRA [Suspect]
     Dates: start: 201211
  3. HUMIRA [Suspect]
  4. DEXILANT [Concomitant]
     Indication: GASTROOESOPHAGEAL REFLUX DISEASE
  5. MAXZIDE [Concomitant]
     Indication: HYPERTENSION
  6. NORTRIPTYLINE [Concomitant]
     Indication: PAIN
  7. VITAMIN D NOS [Concomitant]
     Indication: VITAMIN D DECREASED
  8. VITAMIN B-12 [Concomitant]
     Indication: SMALL INTESTINAL RESECTION
  9. VITAMIN B-12 [Concomitant]
     Indication: ANAEMIA

REACTIONS (14)
  - Pollakiuria [Recovered/Resolved]
  - Kidney infection [Recovered/Resolved]
  - Back pain [Recovered/Resolved]
  - Malaise [Recovered/Resolved]
  - White blood cell count increased [Recovered/Resolved]
  - Vomiting [Recovered/Resolved]
  - Headache [Recovered/Resolved]
  - Blood urine present [Recovered/Resolved]
  - Sepsis [Recovered/Resolved]
  - Urinary tract infection [Recovered/Resolved]
  - Sinusitis [Recovered/Resolved]
  - Bronchitis [Recovered/Resolved]
  - Diarrhoea [Recovering/Resolving]
  - Drug effect decreased [Not Recovered/Not Resolved]
